FAERS Safety Report 16818088 (Version 1)
Quarter: 2019Q3

REPORT INFORMATION
  Report Type: Spontaneous
  Country: IE (occurrence: IE)
  Receive Date: 20190917
  Receipt Date: 20190917
  Transmission Date: 20191005
  Serious: Yes (Hospitalization)
  Sender: FDA-Public Use
  Company Number: IE-JNJFOC-20190910957

PATIENT
  Age: 78 Year
  Sex: Male
  Weight: 94 kg

DRUGS (2)
  1. MULTAQ [Concomitant]
     Active Substance: DRONEDARONE
     Indication: ATRIAL FIBRILLATION
     Dosage: 800 MG, QD
     Route: 048
     Dates: start: 20180801, end: 20190815
  2. RIVAROXABAN [Suspect]
     Active Substance: RIVAROXABAN
     Indication: ATRIAL FIBRILLATION
     Dosage: 20 MG, QD
     Route: 048
     Dates: start: 20180801, end: 20190815

REACTIONS (5)
  - Contraindicated product administered [Unknown]
  - Incorrect dose administered [Unknown]
  - Renal impairment [Unknown]
  - Anaemia [Unknown]
  - Gastrointestinal haemorrhage [Unknown]

NARRATIVE: CASE EVENT DATE: 20190815
